FAERS Safety Report 23251784 (Version 1)
Quarter: 2023Q4

REPORT INFORMATION
  Report Type: Spontaneous
  Country: AU (occurrence: AU)
  Receive Date: 20231201
  Receipt Date: 20231201
  Transmission Date: 20240110
  Serious: Yes (Other)
  Sender: FDA-Public Use
  Company Number: AU-BAXTER-2023BAX036634

PATIENT
  Age: 71 Year
  Sex: Male

DRUGS (9)
  1. DOXORUBICIN [Suspect]
     Active Substance: DOXORUBICIN
     Indication: Follicular lymphoma
     Dosage: UNK, 6 CYCLES AS A PART OF R-CHOP REGIMEN
     Route: 065
  2. CYCLOPHOSPHAMIDE [Suspect]
     Active Substance: CYCLOPHOSPHAMIDE
     Indication: Follicular lymphoma
     Dosage: UNK, 6 CYCLES AS A PART OF R-CHOP REGIMEN
     Route: 065
  3. PREDNISONE [Suspect]
     Active Substance: PREDNISONE
     Indication: Follicular lymphoma
     Dosage: UNK, 6 CYCLES AS A PART OF R-CHOP REGIMEN
     Route: 065
  4. RITUXIMAB [Suspect]
     Active Substance: RITUXIMAB
     Indication: Follicular lymphoma
     Dosage: UNK, 6 CYCLES AS A PART OF R-CHOP REGIMEN
     Route: 065
  5. VINCRISTINE SULFATE [Suspect]
     Active Substance: VINCRISTINE SULFATE
     Indication: Follicular lymphoma
     Dosage: UNK, 6 CYCLES AS A PART OF R-CHOP REGIMEN
     Route: 065
  6. PIRTOBRUTINIB [Suspect]
     Active Substance: PIRTOBRUTINIB
     Indication: Follicular lymphoma
     Dosage: UNK, START DATE: JUN-2022
     Route: 065
  7. UBLITUXIMAB [Suspect]
     Active Substance: UBLITUXIMAB
     Indication: Follicular lymphoma
     Dosage: UNK
     Route: 065
  8. TG-1801 [Suspect]
     Active Substance: TG-1801
     Indication: Follicular lymphoma
     Dosage: UNK
     Route: 065
  9. BGB-11417 [Suspect]
     Active Substance: BGB-11417
     Indication: Follicular lymphoma
     Dosage: UNK
     Route: 065

REACTIONS (2)
  - Mycobacterium avium complex infection [Unknown]
  - Disease progression [Unknown]
